FAERS Safety Report 6269058-1 (Version None)
Quarter: 2009Q3

REPORT INFORMATION
  Report Type: 
  Country: None (occurrence: None)
  Receive Date: 20090715
  Receipt Date: 20090504
  Transmission Date: 20100115
  Serious: Yes (Life-Threatening, Other)
  Sender: FDA-Public Use
  Company Number: RO-PFIZER INC-2009236922

PATIENT
  Age: 50 Year

DRUGS (1)
  1. DALACIN [Suspect]
     Indication: TONSILLITIS
     Dosage: 150 MG, 4X/DAY
     Route: 048
     Dates: start: 20090310, end: 20090311

REACTIONS (9)
  - ABDOMINAL PAIN [None]
  - ANXIETY [None]
  - DIZZINESS [None]
  - DYSPNOEA [None]
  - HYPERHIDROSIS [None]
  - LOSS OF CONSCIOUSNESS [None]
  - PALLOR [None]
  - PARAESTHESIA [None]
  - TINNITUS [None]
